FAERS Safety Report 6451018-9 (Version None)
Quarter: 2009Q4

REPORT INFORMATION
  Report Type: 
  Country: None (occurrence: None)
  Receive Date: 20091123
  Receipt Date: 20091113
  Transmission Date: 20100525
  Serious: Yes (Death)
  Sender: FDA-Public Use
  Company Number: B0606745A

PATIENT
  Age: 52 Year
  Sex: Female

DRUGS (2)
  1. RANITIDINE [Suspect]
     Route: 042
     Dates: start: 20081201
  2. SCOPOLAMINE [Concomitant]
     Route: 042

REACTIONS (3)
  - CARDIAC ARREST [None]
  - COMA [None]
  - VENTRICULAR ARRHYTHMIA [None]
